FAERS Safety Report 8623337-9 (Version None)
Quarter: 2012Q3

REPORT INFORMATION
  Report Type: 
  Country: None (occurrence: None)
  Receive Date: 20120827
  Receipt Date: 20120821
  Transmission Date: 20120928
  Serious: Yes (Other)
  Sender: FDA-Public Use
  Company Number: US-BAYER-2012-086993

PATIENT
  Age: 23 Year
  Sex: Female

DRUGS (1)
  1. MIRENA [Suspect]
     Indication: CONTRACEPTION
     Dosage: DAILY DOSE 20 ?G
     Route: 015
     Dates: start: 20120101

REACTIONS (6)
  - AMENORRHOEA [None]
  - ASTHENIA [None]
  - HEADACHE [None]
  - ABDOMINAL PAIN UPPER [None]
  - VAGINAL HAEMORRHAGE [None]
  - HYPOAESTHESIA [None]
